FAERS Safety Report 8431965-9 (Version None)
Quarter: 2012Q2

REPORT INFORMATION
  Report Type: 
  Country: None (occurrence: None)
  Receive Date: 20120613
  Receipt Date: 20111221
  Transmission Date: 20120825
  Serious: No
  Sender: FDA-Public Use
  Company Number: US-ASTRAZENECA-2011SE30339

PATIENT
  Age: 59 Year
  Sex: Female

DRUGS (4)
  1. RHINOCORT [Suspect]
     Route: 045
  2. NEXIUM [Suspect]
     Route: 048
  3. CRESTOR [Suspect]
     Route: 048
  4. VIMOVO [Suspect]
     Route: 048

REACTIONS (3)
  - MALAISE [None]
  - DYSPNOEA [None]
  - DRUG DOSE OMISSION [None]
